FAERS Safety Report 9034935 (Version 2)
Quarter: 2013Q1

REPORT INFORMATION
  Report Type: Spontaneous
  Country: FR (occurrence: None)
  Receive Date: 20130114
  Receipt Date: 20130201
  Transmission Date: 20140127
  Serious: Yes (Hospitalization)
  Sender: FDA-Public Use
  Company Number: 2013034388

PATIENT
  Age: 63 Year
  Sex: Male

DRUGS (5)
  1. SANDOGLOBULIN [Suspect]
     Indication: PERIPHERAL SENSORIMOTOR NEUROPATHY
     Dosage: 2G/KG/COURSE
     Route: 042
     Dates: start: 20110131, end: 20110204
  2. BISOPROLOL [Suspect]
  3. CARDENSIEL (BISOPROLOL FUMARATE) [Concomitant]
  4. CORDARONE /00133101/ (AMIODARONE) [Concomitant]
  5. PREVISCAN (FLUINDIONE) [Concomitant]

REACTIONS (3)
  - Toxic skin eruption [None]
  - Eczema [None]
  - Prurigo [None]
